FAERS Safety Report 22603349 (Version 1)
Quarter: 2023Q2

REPORT INFORMATION
  Report Type: Other
  Country: ES (occurrence: None)
  Receive Date: 20230615
  Receipt Date: 20230615
  Transmission Date: 20230722
  Serious: Yes (Hospitalization, Other)
  Sender: FDA-Public Use
  Company Number: ES-Square-000148

PATIENT
  Age: 37 Year
  Sex: Male

DRUGS (2)
  1. ARIPIPRAZOLE [Suspect]
     Active Substance: ARIPIPRAZOLE
     Indication: Delusion
     Dosage: 800 MG OF EXTENDED-RELEASE INJECTABLE
  2. DIAZEPAM [Suspect]
     Active Substance: DIAZEPAM
     Indication: Neuroleptic malignant syndrome
     Route: 048

REACTIONS (6)
  - Neuroleptic malignant syndrome [Recovering/Resolving]
  - Hyperthermia malignant [Recovering/Resolving]
  - Muscle rigidity [Unknown]
  - Condition aggravated [Unknown]
  - Dysphemia [Unknown]
  - Obsessive thoughts [Unknown]
